FAERS Safety Report 7339560-X (Version None)
Quarter: 2011Q1

REPORT INFORMATION
  Report Type: 
  Country: None (occurrence: None)
  Receive Date: 20110308
  Receipt Date: 20110216
  Transmission Date: 20110831
  Serious: No
  Sender: FDA-Public Use
  Company Number: US-AMGEN-USASP2011009467

PATIENT
  Age: 65 Year
  Sex: Female

DRUGS (3)
  1. METOPROLOL [Concomitant]
  2. LEVOTHYROXINE [Concomitant]
     Dosage: UNK
  3. PROLIA [Suspect]
     Indication: OSTEOPOROSIS POSTMENOPAUSAL
     Dosage: 60 MG, Q6MO
     Dates: start: 20100901

REACTIONS (1)
  - DERMATITIS [None]
